FAERS Safety Report 10650540 (Version 1)
Quarter: 2014Q4

REPORT INFORMATION
  Report Type: Spontaneous
  Country: US (occurrence: US)
  Receive Date: 20141214
  Receipt Date: 20141214
  Transmission Date: 20150529
  Serious: No
  Sender: FDA-Public Use
  Company Number: US-BAUSCH-SYM-2014-22976

PATIENT
  Sex: Male

DRUGS (2)
  1. NORCO [Suspect]
     Active Substance: ACETAMINOPHEN\HYDROCODONE BITARTRATE
     Indication: PRODUCT USED FOR UNKNOWN INDICATION
  2. XENAZINE [Suspect]
     Active Substance: TETRABENAZINE
     Indication: MOVEMENT DISORDER
     Route: 048
     Dates: start: 201406

REACTIONS (2)
  - Fatigue [Unknown]
  - Off label use [Unknown]
